FAERS Safety Report 5879867-6 (Version None)
Quarter: 2008Q3

REPORT INFORMATION
  Report Type: 
  Country: None (occurrence: None)
  Receive Date: 20080911
  Receipt Date: 20080911
  Transmission Date: 20090109
  Serious: Yes (Hospitalization)
  Sender: FDA-Public Use
  Company Number: None

PATIENT
  Sex: Female
  Weight: 74.8435 kg

DRUGS (13)
  1. ROPINIROLE HYDROCHLORIDE [Suspect]
     Indication: RESTLESS LEGS SYNDROME
     Dosage: 0.5 MG 1 AT BEDTIME ORAL
     Route: 048
     Dates: start: 20080728, end: 20080802
  2. JANUVIA [Concomitant]
  3. METFORMIN [Concomitant]
  4. CILOSTAZOL [Concomitant]
  5. PLAZIX [Concomitant]
  6. ASPIRIN [Concomitant]
  7. METOPROLOL TARTRATE [Concomitant]
  8. AMLODIPINE [Concomitant]
  9. OMEPRAZOLE [Concomitant]
  10. LOVAZA [Concomitant]
  11. ANTARA [Concomitant]
  12. ZETIA [Concomitant]
  13. PREZOLINE (PRN) [Concomitant]

REACTIONS (6)
  - AMNESIA [None]
  - CONTUSION [None]
  - LOSS OF CONSCIOUSNESS [None]
  - ROAD TRAFFIC ACCIDENT [None]
  - SOMNOLENCE [None]
  - SYNCOPE [None]
